FAERS Safety Report 7442351-2 (Version None)
Quarter: 2011Q2

REPORT INFORMATION
  Report Type: 
  Country: None (occurrence: None)
  Receive Date: 20110419
  Receipt Date: 20110411
  Transmission Date: 20111010
  Serious: Yes (Life-Threatening)
  Sender: FDA-Public Use
  Company Number: 888444

PATIENT
  Age: 58 Year
  Sex: Female
  Weight: 98 kg

DRUGS (1)
  1. CARBOPLATIN [Suspect]
     Indication: OVARIAN CANCER
     Dosage: 510 MB MILLIGRAM(S), INTRAVENOUS
     Route: 042
     Dates: start: 20110318, end: 20110318

REACTIONS (2)
  - RASH [None]
  - UNRESPONSIVE TO STIMULI [None]
